FAERS Safety Report 8764285 (Version 3)
Quarter: 2013Q1

REPORT INFORMATION
  Report Type: Spontaneous
  Country: JP (occurrence: JP)
  Receive Date: 20120903
  Receipt Date: 20130107
  Transmission Date: 20140127
  Serious: Yes (Other)
  Sender: FDA-Public Use
  Company Number: JP-UCBSA-064109

PATIENT
  Age: 55 Year
  Sex: Male

DRUGS (6)
  1. E KEPPRA [Suspect]
     Indication: EPILEPSY
     Dosage: STRENGTH: 500 MG
     Route: 048
     Dates: start: 20120819, end: 20120821
  2. EXCEGRAN [Concomitant]
     Indication: EPILEPSY
     Dosage: DAILY DOSE : 200 MG
     Route: 048
     Dates: start: 20120814
  3. MAGMITT [Concomitant]
     Indication: CONSTIPATION
     Dosage: DAILY DOSE  : 1980 MG
     Route: 048
     Dates: start: 20120818, end: 20120821
  4. BLOSTAR M [Concomitant]
     Indication: ULCER
     Dosage: DAILY DOSE : 40 MG
     Route: 048
     Dates: start: 20120817
  5. TANNALBIN [Concomitant]
     Indication: DIARRHOEA
     Dosage: DAILY DOSE : 3 G
     Route: 048
     Dates: start: 20120821
  6. LAC-B [Concomitant]
     Indication: DIARRHOEA
     Dosage: DAILY DOSE: 3 G
     Route: 048
     Dates: start: 20120821

REACTIONS (3)
  - Hyperamylasaemia [Recovering/Resolving]
  - Nausea [Recovering/Resolving]
  - Decreased appetite [Recovering/Resolving]
